FAERS Safety Report 7434348-3 (Version None)
Quarter: 2011Q2

REPORT INFORMATION
  Report Type: 
  Country: None (occurrence: None)
  Receive Date: 20110425
  Receipt Date: 20110419
  Transmission Date: 20111010
  Serious: Yes (Other)
  Sender: FDA-Public Use
  Company Number: US-PFIZER INC-2011071015

PATIENT
  Sex: Male

DRUGS (3)
  1. XALATAN [Suspect]
     Dosage: UNK
  2. XALATAN [Suspect]
  3. XALATAN [Suspect]

REACTIONS (2)
  - CHEST PAIN [None]
  - DIZZINESS [None]
